FAERS Safety Report 7526439-3 (Version None)
Quarter: 2011Q2

REPORT INFORMATION
  Report Type: 
  Country: None (occurrence: None)
  Receive Date: 20110606
  Receipt Date: 20110601
  Transmission Date: 20111010
  Serious: Yes (Other)
  Sender: FDA-Public Use
  Company Number: US-PFIZER INC-2011108480

PATIENT
  Sex: Male
  Weight: 86.168 kg

DRUGS (5)
  1. PANTOPRAZOLE [Concomitant]
     Dosage: UNK
  2. CHANTIX [Suspect]
     Indication: SMOKING CESSATION THERAPY
     Dosage: 0.5 MG, 1X/DAY
     Dates: start: 20110422
  3. CHANTIX [Suspect]
     Dosage: 0.5 MG, 2X/DAY
     Route: 048
     Dates: start: 20110425
  4. LISINOPRIL [Concomitant]
     Indication: HYPERTENSION
     Dosage: UNK
  5. CHANTIX [Suspect]
     Dosage: 1 MG, 2X/DAY
     Dates: start: 20110501, end: 20110508

REACTIONS (6)
  - ABNORMAL DREAMS [None]
  - NIGHTMARE [None]
  - IRRITABILITY [None]
  - ANXIETY [None]
  - INSOMNIA [None]
  - DEPRESSION [None]
